FAERS Safety Report 20375533 (Version 1)
Quarter: 2022Q1

REPORT INFORMATION
  Report Type: Spontaneous
  Country: US (occurrence: US)
  Receive Date: 20220125
  Receipt Date: 20220125
  Transmission Date: 20220423
  Serious: No
  Sender: FDA-Public Use
  Company Number: US-PFIZER INC-202101461680

PATIENT
  Age: 65 Year
  Sex: Female
  Weight: 71.21 kg

DRUGS (1)
  1. AMLODIPINE BESYLATE [Suspect]
     Active Substance: AMLODIPINE BESYLATE
     Indication: Cardiac disorder
     Dosage: 2.5 MG, 2X/DAY (ONE IN THE MORNING AND ONE IN THE EVENING )

REACTIONS (2)
  - Off label use [Unknown]
  - Malaise [Unknown]
